FAERS Safety Report 5796217-4 (Version None)
Quarter: 2008Q2

REPORT INFORMATION
  Report Type: 
  Country: None (occurrence: None)
  Receive Date: 20080630
  Receipt Date: 20080630
  Transmission Date: 20081010
  Serious: No
  Sender: FDA-Public Use
  Company Number: None

PATIENT
  Age: 59 Year
  Sex: Male
  Weight: 117.9352 kg

DRUGS (1)
  1. ALPRAZOLAM TAB 0.25MG, GENERIC FOR XANAX [Suspect]

REACTIONS (5)
  - DRUG DISPENSING ERROR [None]
  - FATIGUE [None]
  - HYPERSOMNIA [None]
  - MEDICATION ERROR [None]
  - WRONG DRUG ADMINISTERED [None]
